FAERS Safety Report 13833552 (Version 2)
Quarter: 2018Q1

REPORT INFORMATION
  Report Type: Spontaneous
  Country: US (occurrence: US)
  Receive Date: 20170804
  Receipt Date: 20180219
  Transmission Date: 20180508
  Serious: Yes (Other)
  Sender: FDA-Public Use
  Company Number: US-BAYER-2017-146712

PATIENT
  Age: 5 Year
  Sex: Male

DRUGS (1)
  1. KOGENATE FS [Suspect]
     Active Substance: ANTIHEMOPHILIC FACTOR, HUMAN RECOMBINANT
     Indication: FACTOR VIII DEFICIENCY
     Dosage: 1200 IU, PRN, USED 6 DOSES IN LAST 2 WEEKS
     Route: 042
     Dates: start: 20170727

REACTIONS (2)
  - Emergency care [None]
  - Haemorrhage [None]
